FAERS Safety Report 7741867-9 (Version None)
Quarter: 2011Q3

REPORT INFORMATION
  Report Type: 
  Country: None (occurrence: None)
  Receive Date: 20110906
  Receipt Date: 20110822
  Transmission Date: 20111222
  Serious: Yes (Other)
  Sender: FDA-Public Use
  Company Number: AUR-APL-2011-04762

PATIENT
  Age: 43 Year
  Sex: Female

DRUGS (4)
  1. PAROXETINE HCL [Suspect]
     Indication: DEPRESSION
     Dosage: 10 MG, 1 D,
  2. ALPRAZOLAM [Concomitant]
  3. CLOMPIRAMINE [Concomitant]
  4. DULOXETINE HYDROCHLORIDE [Suspect]
     Indication: DEPRESSION

REACTIONS (3)
  - ERYTHEMA MULTIFORME [None]
  - PHOTOSENSITIVITY REACTION [None]
  - CROSS SENSITIVITY REACTION [None]
